FAERS Safety Report 25135645 (Version 1)
Quarter: 2025Q1

REPORT INFORMATION
  Report Type: Spontaneous
  Country: US (occurrence: US)
  Receive Date: 20250328
  Receipt Date: 20250328
  Transmission Date: 20250409
  Serious: No
  Sender: JOHNSON AND JOHNSON
  Company Number: US-JNJFOC-20250346689

PATIENT
  Age: 62 Year
  Sex: Male
  Weight: 73.48 kg

DRUGS (13)
  1. LAZCLUZE [Suspect]
     Active Substance: LAZERTINIB
     Indication: Lung carcinoma cell type unspecified stage I
     Route: 048
     Dates: start: 20250102
  2. CLINDAMYCIN [Concomitant]
     Active Substance: CLINDAMYCIN
  3. COLACE [Concomitant]
     Active Substance: DOCUSATE SODIUM
  4. GABAPENTIN [Concomitant]
     Active Substance: GABAPENTIN
  5. HYDROCORTISONE [Concomitant]
     Active Substance: HYDROCORTISONE
  6. METFORMIN [Concomitant]
     Active Substance: METFORMIN HYDROCHLORIDE
  7. NAPROXEN [Concomitant]
     Active Substance: NAPROXEN
  8. NARCAN [Concomitant]
     Active Substance: NALOXONE HYDROCHLORIDE
  9. OMEPRAZOLE [Concomitant]
     Active Substance: OMEPRAZOLE
  10. OXYCODONE [Concomitant]
     Active Substance: OXYCODONE
  11. SENNA [Concomitant]
     Active Substance: SENNOSIDES
  12. SIMVASTATIN [Concomitant]
     Active Substance: SIMVASTATIN
  13. XGEVA [Concomitant]
     Active Substance: DENOSUMAB

REACTIONS (2)
  - Rash [Recovering/Resolving]
  - Dry skin [Recovering/Resolving]

NARRATIVE: CASE EVENT DATE: 20250101
